FAERS Safety Report 4660504-3 (Version None)
Quarter: 2005Q2

REPORT INFORMATION
  Report Type: 
  Country: None (occurrence: None)
  Receive Date: 20050512
  Receipt Date: 20050505
  Transmission Date: 20051028
  Serious: Yes (Hospitalization)
  Sender: FDA-Public Use
  Company Number: US-KINGPHARMUSA00001-K200500583

PATIENT
  Age: 53 Year
  Sex: Male

DRUGS (2)
  1. ALTACE [Suspect]
     Dosage: 1.25 MG, QD
     Route: 048
     Dates: start: 20040401
  2. LASILIX [Suspect]
     Route: 048
     Dates: start: 20040401, end: 20040503

REACTIONS (4)
  - BLOOD CREATININE INCREASED [None]
  - HAEMATURIA [None]
  - POST PROCEDURAL HAEMORRHAGE [None]
  - RENAL IMPAIRMENT [None]
